FAERS Safety Report 6869209-1 (Version None)
Quarter: 2010Q3

REPORT INFORMATION
  Report Type: 
  Country: None (occurrence: None)
  Receive Date: 20100722
  Receipt Date: 20080808
  Transmission Date: 20110219
  Serious: Yes (Other)
  Sender: FDA-Public Use
  Company Number: US-PFIZER INC-2008054010

PATIENT
  Sex: Female

DRUGS (5)
  1. CHANTIX [Suspect]
     Indication: SMOKING CESSATION THERAPY
     Dates: start: 20071222
  2. AMLODIPINE [Suspect]
     Indication: BLOOD PRESSURE
  3. LISINOPRIL [Concomitant]
  4. MECLIZINE [Concomitant]
  5. RANITIDINE [Concomitant]

REACTIONS (2)
  - ABNORMAL DREAMS [None]
  - BLOOD PRESSURE ABNORMAL [None]
